FAERS Safety Report 8438441-8 (Version None)
Quarter: 2012Q2

REPORT INFORMATION
  Report Type: 
  Country: None (occurrence: None)
  Receive Date: 20120614
  Receipt Date: 20120601
  Transmission Date: 20120825
  Serious: Yes (Hospitalization)
  Sender: FDA-Public Use
  Company Number: CHPA2012US011749

PATIENT
  Sex: Female

DRUGS (2)
  1. EXCEDRIN EXTRA STRENGTH TABLETS [Suspect]
     Dosage: 1-2 DF, PRN
     Route: 048
  2. EXCEDRIN EXTRA STRENGTH TABLETS [Suspect]
     Indication: MIGRAINE
     Dosage: 1-2 DF, PRN
     Route: 048

REACTIONS (7)
  - PAIN [None]
  - UNDERDOSE [None]
  - MOTOR DYSFUNCTION [None]
  - HYPOAESTHESIA [None]
  - GAIT DISTURBANCE [None]
  - CEREBROVASCULAR ACCIDENT [None]
  - INSOMNIA [None]
